FAERS Safety Report 13818333 (Version 1)
Quarter: 2017Q3

REPORT INFORMATION
  Report Type: Spontaneous
  Country: US (occurrence: US)
  Receive Date: 20170731
  Receipt Date: 20170731
  Transmission Date: 20171127
  Serious: No
  Sender: FDA-Public Use
  Company Number: US-ROCHE-629580

PATIENT
  Age: 61 Year
  Sex: Female

DRUGS (1)
  1. BONIVA [Suspect]
     Active Substance: IBANDRONATE SODIUM
     Indication: PRODUCT USED FOR UNKNOWN INDICATION
     Dosage: DOSE: 3MG/3ML.
     Route: 065

REACTIONS (5)
  - Fatigue [Unknown]
  - Peripheral swelling [Unknown]
  - Lymph node pain [Unknown]
  - Pain [Unknown]
  - Laryngitis [Unknown]

NARRATIVE: CASE EVENT DATE: 20090313
